FAERS Safety Report 5428071-4 (Version None)
Quarter: 2007Q3

REPORT INFORMATION
  Report Type: 
  Country: None (occurrence: None)
  Receive Date: 20070731
  Receipt Date: 20070425
  Transmission Date: 20080115
  Serious: No
  Sender: FDA-Public Use
  Company Number: US200704005891

PATIENT
  Age: 59 Year
  Sex: Male

DRUGS (9)
  1. BYETTA [Suspect]
     Indication: TYPE 2 DIABETES MELLITUS
     Dosage: 5 UG, 2/D, SUBCUTANEOUS ; 10 UG 2/D SUBCUTANEOUS ; 5 UG 2/D, SUBCUTANEOUS
     Route: 058
     Dates: start: 20060601, end: 20060101
  2. BYETTA [Suspect]
     Indication: TYPE 2 DIABETES MELLITUS
     Dosage: 5 UG, 2/D, SUBCUTANEOUS ; 10 UG 2/D SUBCUTANEOUS ; 5 UG 2/D, SUBCUTANEOUS
     Route: 058
     Dates: start: 20060101, end: 20070101
  3. BYETTA [Suspect]
     Indication: TYPE 2 DIABETES MELLITUS
     Dosage: 5 UG, 2/D, SUBCUTANEOUS ; 10 UG 2/D SUBCUTANEOUS ; 5 UG 2/D, SUBCUTANEOUS
     Route: 058
     Dates: start: 20070101
  4. EXENATIDE 10 MCG PEN, DISPOSABLE DEVICE (EXENATIDE PEN (10 MCG)) PEN, [Concomitant]
  5. DRUG USED IN DIABETES [Concomitant]
  6. AVALIDE [Concomitant]
  7. SIMVASTATIN [Concomitant]
  8. COREG [Concomitant]
  9. ALLERGY MEDICATION [Concomitant]

REACTIONS (3)
  - FEELING ABNORMAL [None]
  - NAUSEA [None]
  - VOMITING [None]
